FAERS Safety Report 9916485 (Version 1)
Quarter: 2014Q1

REPORT INFORMATION
  Report Type: Spontaneous
  Country: US (occurrence: None)
  Receive Date: 20140219
  Receipt Date: 20140219
  Transmission Date: 20141002
  Serious: Yes (Hospitalization)
  Sender: FDA-Public Use
  Company Number: SYM-2014-17563

PATIENT
  Age: 6 Year
  Sex: Female

DRUGS (1)
  1. XENAZINE [Suspect]
     Indication: OFF LABEL USE

REACTIONS (1)
  - Infection [None]
